FAERS Safety Report 25729104 (Version 1)
Quarter: 2025Q3

REPORT INFORMATION
  Report Type: Spontaneous
  Country: CN (occurrence: CN)
  Receive Date: 20250827
  Receipt Date: 20250827
  Transmission Date: 20251021
  Serious: Yes (Other)
  Sender: GLAXOSMITHKLINE
  Company Number: CN-GLAXOSMITHKLINE INC-CN2025CHI104077

PATIENT
  Age: 20 Year
  Sex: Female
  Weight: 55 kg

DRUGS (2)
  1. BELIMUMAB [Suspect]
     Active Substance: BELIMUMAB
     Indication: Systemic lupus erythematosus
     Dosage: 480 MG, WE
  2. SODIUM CHLORIDE [Suspect]
     Active Substance: SODIUM CHLORIDE
     Indication: Medication dilution
     Dosage: 250 ML, WE

REACTIONS (11)
  - Conjunctival hyperaemia [Recovered/Resolved]
  - Pneumonia [Unknown]
  - Hypothyroidism [Unknown]
  - Pericardial effusion [Unknown]
  - Cardiac failure [Unknown]
  - Haemolytic anaemia [Unknown]
  - Leukopenia [Unknown]
  - Multiple organ dysfunction syndrome [Unknown]
  - Sinus tachycardia [Unknown]
  - Nasopharyngitis [Unknown]
  - Product use issue [Unknown]

NARRATIVE: CASE EVENT DATE: 20250801
